FAERS Safety Report 4594413-5 (Version None)
Quarter: 2005Q1

REPORT INFORMATION
  Report Type: 
  Country: None (occurrence: None)
  Receive Date: 20050301
  Receipt Date: 20040120
  Transmission Date: 20050727
  Serious: No
  Sender: FDA-Public Use
  Company Number: US-GLAXOSMITHKLINE-A0494253A

PATIENT
  Age: 53 Year
  Sex: Female

DRUGS (10)
  1. VALTREX [Suspect]
     Indication: ILL-DEFINED DISORDER
     Dosage: 1G VARIABLE DOSE
     Route: 048
  2. ALLEGRA-D [Concomitant]
  3. SYNTHROID [Concomitant]
  4. ATROVENT [Concomitant]
  5. PAXIL [Concomitant]
  6. PREDNISONE [Concomitant]
  7. ZYRTEC [Concomitant]
  8. LOTENSIN HCT [Concomitant]
  9. IMITREX [Concomitant]
  10. PULMICORT [Concomitant]

REACTIONS (1)
  - STOOL ANALYSIS ABNORMAL [None]
